FAERS Safety Report 5831376-6 (Version None)
Quarter: 2008Q3

REPORT INFORMATION
  Report Type: 
  Country: None (occurrence: None)
  Receive Date: 20080801
  Receipt Date: 20080707
  Transmission Date: 20090109
  Serious: No
  Sender: FDA-Public Use
  Company Number: US-BOEHRINGER INGELHEIM GMBH, GERMANY-2008-BP-10594BP

PATIENT
  Sex: Female

DRUGS (3)
  1. MIRAPEX [Suspect]
     Indication: RESTLESS LEGS SYNDROME
  2. TRAZODONE HCL [Concomitant]
     Indication: INSOMNIA
  3. PAIN MEDS [Concomitant]
     Indication: BACK PAIN

REACTIONS (4)
  - CONSTIPATION [None]
  - FEELING ABNORMAL [None]
  - INHIBITORY DRUG INTERACTION [None]
  - INSOMNIA [None]
